FAERS Safety Report 25033945 (Version 1)
Quarter: 2025Q1

REPORT INFORMATION
  Report Type: Spontaneous
  Country: US (occurrence: US)
  Receive Date: 20250303
  Receipt Date: 20250303
  Transmission Date: 20250408
  Serious: No
  Sender: Haleon PLC
  Company Number: US-HALEON-2206916

PATIENT
  Age: 50 Year
  Sex: Female

DRUGS (2)
  1. DICLOFENAC [Suspect]
     Active Substance: DICLOFENAC
     Indication: Product used for unknown indication
     Route: 061
  2. KETOROLAC [Suspect]
     Active Substance: KETOROLAC TROMETHAMINE
     Indication: Product used for unknown indication

REACTIONS (6)
  - Drug hypersensitivity [Unknown]
  - Respiratory symptom [Unknown]
  - Cutaneous symptom [Unknown]
  - Urticaria [Unknown]
  - Dyspnoea [Unknown]
  - Hypersensitivity [Unknown]
